FAERS Safety Report 22344122 (Version 1)
Quarter: 2023Q2

REPORT INFORMATION
  Report Type: Spontaneous
  Country: BR (occurrence: BR)
  Receive Date: 20230519
  Receipt Date: 20230519
  Transmission Date: 20230722
  Serious: Yes (Hospitalization, Other)
  Sender: FDA-Public Use
  Company Number: BR-GLAXOSMITHKLINE-BR2022AMR152054

PATIENT

DRUGS (1)
  1. BENLYSTA [Suspect]
     Active Substance: BELIMUMAB
     Indication: Systemic lupus erythematosus
     Dosage: UNK
     Dates: start: 20190906

REACTIONS (10)
  - Systemic lupus erythematosus [Unknown]
  - Pneumonia [Unknown]
  - Dyspnoea [Unknown]
  - Underweight [Unknown]
  - Skin ulcer [Unknown]
  - Swelling [Unknown]
  - Oesophageal disorder [Unknown]
  - Renal disorder [Unknown]
  - Circumstance or information capable of leading to medication error [Unknown]
  - Product dose omission issue [Unknown]

NARRATIVE: CASE EVENT DATE: 20220906
